FAERS Safety Report 10591573 (Version 3)
Quarter: 2014Q4

REPORT INFORMATION
  Report Type: Report from Study
  Country: US (occurrence: US)
  Receive Date: 20141118
  Receipt Date: 20141231
  Transmission Date: 20150529
  Serious: Yes (Hospitalization)
  Sender: FDA-Public Use
  Company Number: US-ACTELION-A-US2014-108078

PATIENT
  Age: 86 Year
  Sex: Female

DRUGS (1)
  1. MACITENTAN [Suspect]
     Active Substance: MACITENTAN
     Indication: PULMONARY ARTERIAL HYPERTENSION
     Dosage: 10 MG, QD
     Route: 048

REACTIONS (4)
  - Fluid retention [Unknown]
  - Cardiac failure [Unknown]
  - Aspiration pleural cavity [Unknown]
  - Blood creatine decreased [Unknown]

NARRATIVE: CASE EVENT DATE: 20141101
